FAERS Safety Report 25305457 (Version 1)
Quarter: 2025Q2

REPORT INFORMATION
  Report Type: Spontaneous
  Country: FR (occurrence: FR)
  Receive Date: 20250513
  Receipt Date: 20250513
  Transmission Date: 20250717
  Serious: Yes (Hospitalization)
  Sender: CATALYST PHARMA
  Company Number: FR-CATALYSTPHARMACEUTICALPARTNERS-FR-CATA-25-00674

PATIENT
  Age: 52 Year
  Sex: Male

DRUGS (3)
  1. FYCOMPA [Suspect]
     Active Substance: PERAMPANEL
     Indication: Epilepsy
     Dosage: 8.0 MILLIGRAM(S) (8 MILLIGRAM(S), 1 IN 1 DAY)
     Route: 048
     Dates: start: 20241201, end: 20241204
  2. PHENYTOIN [Suspect]
     Active Substance: PHENYTOIN
     Indication: Product used for unknown indication
     Route: 048
     Dates: start: 20241130, end: 20241212
  3. VIMPAT [Suspect]
     Active Substance: LACOSAMIDE
     Indication: Epilepsy
     Route: 048
     Dates: start: 20241130, end: 20241222

REACTIONS (3)
  - Visual impairment [Recovered/Resolved]
  - Rash [Recovered/Resolved]
  - Ataxia [Recovered/Resolved]

NARRATIVE: CASE EVENT DATE: 20241212
